FAERS Safety Report 8112421-4 (Version None)
Quarter: 2012Q1

REPORT INFORMATION
  Report Type: 
  Country: None (occurrence: None)
  Receive Date: 20120203
  Receipt Date: 20120125
  Transmission Date: 20120608
  Serious: Yes (Hospitalization)
  Sender: FDA-Public Use
  Company Number: US-ABBOTT-12P-163-0897246-00

PATIENT
  Sex: Female
  Weight: 52.21 kg

DRUGS (2)
  1. HUMIRA [Suspect]
     Indication: CROHN'S DISEASE
     Dates: start: 20101101, end: 20110601
  2. HUMIRA [Suspect]
     Indication: RHEUMATOID ARTHRITIS

REACTIONS (6)
  - VOMITING [None]
  - PYREXIA [None]
  - CROHN'S DISEASE [None]
  - ABDOMINAL PAIN [None]
  - RECTAL HAEMORRHAGE [None]
  - BLOOD POTASSIUM DECREASED [None]
